APPROVED DRUG PRODUCT: EXIDINE
Active Ingredient: CHLORHEXIDINE GLUCONATE
Strength: 4%
Dosage Form/Route: SOLUTION;TOPICAL
Application: N019125 | Product #001
Applicant: XTTRIUM LABORATORIES INC
Approved: Dec 24, 1984 | RLD: No | RS: No | Type: OTC